FAERS Safety Report 5312683-2 (Version None)
Quarter: 2007Q2

REPORT INFORMATION
  Report Type: 
  Country: None (occurrence: None)
  Receive Date: 20070430
  Receipt Date: 20070320
  Transmission Date: 20071010
  Serious: No
  Sender: FDA-Public Use
  Company Number: 2007UW03225

PATIENT
  Age: 66 Year
  Sex: Female
  Weight: 81.6 kg

DRUGS (7)
  1. NEXIUM [Suspect]
     Indication: GASTROOESOPHAGEAL REFLUX DISEASE
     Route: 048
     Dates: start: 20070101
  2. NEXIUM [Suspect]
     Indication: COUGH
     Route: 048
     Dates: start: 20070101
  3. GLUCOSAMINE [Concomitant]
  4. CALCIUM CHLORIDE [Concomitant]
  5. MULTI-VITAMIN [Concomitant]
  6. OMEGA 3 FISH OIL [Concomitant]
  7. VITAMIN E [Concomitant]

REACTIONS (1)
  - ANORGASMIA [None]
